FAERS Safety Report 18113124 (Version 3)
Quarter: 2020Q3

REPORT INFORMATION
  Report Type: Spontaneous
  Country: BY (occurrence: BY)
  Receive Date: 20200805
  Receipt Date: 20200910
  Transmission Date: 20201103
  Serious: Yes (Other)
  Sender: FDA-Public Use
  Company Number: BY-ROCHE-2651912

PATIENT
  Sex: Male

DRUGS (3)
  1. COTELLIC [Suspect]
     Active Substance: COBIMETINIB
     Indication: METASTATIC MALIGNANT MELANOMA
     Route: 065
     Dates: start: 20190815
  2. PROLGOLIMAB [Suspect]
     Active Substance: PROLGOLIMAB
     Indication: PRODUCT USED FOR UNKNOWN INDICATION
     Dosage: 2 DOSES
     Route: 065
     Dates: start: 20200622, end: 20200707
  3. ZELBORAF [Suspect]
     Active Substance: VEMURAFENIB
     Indication: METASTATIC MALIGNANT MELANOMA
     Route: 065
     Dates: start: 20190815

REACTIONS (7)
  - Pneumonitis [Recovered/Resolved]
  - Conjunctival haemorrhage [Unknown]
  - Metastases to central nervous system [Unknown]
  - Speech disorder [Unknown]
  - Pneumonitis [Unknown]
  - Lymphoid tissue hyperplasia [Unknown]
  - Dizziness [Unknown]

NARRATIVE: CASE EVENT DATE: 2020
